FAERS Safety Report 11268762 (Version 2)
Quarter: 2023Q4

REPORT INFORMATION
  Report Type: Other
  Country: GB (occurrence: GB)
  Receive Date: 20150714
  Receipt Date: 20231130
  Transmission Date: 20240109
  Serious: Yes (Hospitalization)
  Sender: FDA-Public Use
  Company Number: GB-MACLEODS PHARMACEUTICALS US LTD-MAC2015001858

PATIENT

DRUGS (4)
  1. CLOPIDOGREL [Suspect]
     Active Substance: CLOPIDOGREL BISULFATE
     Indication: Transient ischaemic attack
     Dosage: 75 MILLIGRAM
     Route: 048
     Dates: start: 20130322, end: 20150630
  2. ASPIRIN [Suspect]
     Active Substance: ASPIRIN
     Indication: Transient ischaemic attack
     Dosage: 75 MILLIGRAM
     Route: 048
     Dates: start: 20130322, end: 20150630
  3. DIPYRIDAMOLE [Suspect]
     Active Substance: DIPYRIDAMOLE
     Indication: Transient ischaemic attack
     Dosage: 200 MG, BID (200 MG, TWO TIMES A DAY)
     Route: 048
     Dates: start: 20130322, end: 20150630
  4. OMEPRAZOLE [Concomitant]
     Active Substance: OMEPRAZOLE
     Indication: Gastrooesophageal reflux disease
     Dosage: 20 MG, QD (20 MG, ONCE A DAY)
     Route: 065

REACTIONS (5)
  - Cough [Unknown]
  - Pharyngeal swelling [Recovering/Resolving]
  - Swelling [Unknown]
  - Dyspnoea [Recovering/Resolving]
  - Wheezing [Recovering/Resolving]

NARRATIVE: CASE EVENT DATE: 20130612
